FAERS Safety Report 9669170 (Version 1)
Quarter: 2013Q4

REPORT INFORMATION
  Report Type: Spontaneous
  Country: US (occurrence: None)
  Receive Date: 20131104
  Receipt Date: 20131104
  Transmission Date: 20140711
  Serious: Yes (Disabling)
  Sender: FDA-Public Use
  Company Number: None

PATIENT
  Age: 69 Year
  Sex: 0
  Weight: 56.7 kg

DRUGS (1)
  1. ALBUTEROL SULFATE [Suspect]
     Indication: CHRONIC OBSTRUCTIVE PULMONARY DISEASE
     Dosage: ONE VIAL 3 TO 4 TIMES A DAY, FOUR TIMES DAILY, INHALATION
     Route: 055

REACTIONS (10)
  - Burning sensation [None]
  - Lung disorder [None]
  - Dyspnoea [None]
  - Blood pressure increased [None]
  - Tremor [None]
  - Asthenia [None]
  - Dizziness [None]
  - Lung infection [None]
  - Pulmonary oedema [None]
  - Poor quality drug administered [None]
